FAERS Safety Report 9357627 (Version 1)
Quarter: 2013Q2

REPORT INFORMATION
  Report Type: Spontaneous
  Country: CN (occurrence: CN)
  Receive Date: 20130620
  Receipt Date: 20130620
  Transmission Date: 20140414
  Serious: Yes (Other)
  Sender: FDA-Public Use
  Company Number: CN-ASTRAZENECA-2013SE46301

PATIENT
  Age: 769 Day
  Sex: Female
  Weight: 12 kg

DRUGS (6)
  1. BUDESONIDE [Suspect]
     Indication: BRONCHITIS
     Route: 055
     Dates: start: 20120227, end: 20120305
  2. CEFTAZIDIME [Suspect]
     Indication: BRONCHITIS
     Route: 041
     Dates: start: 20120227, end: 20120305
  3. TERBUTALINE SULFATE [Suspect]
     Indication: BRONCHITIS
     Route: 065
     Dates: start: 20120227, end: 20120305
  4. AMBROXOL HYDROCHLORIDE [Suspect]
     Indication: BRONCHITIS
     Route: 041
     Dates: start: 20120227, end: 20120305
  5. AZITHROMYCIN [Suspect]
     Indication: PNEUMONIA MYCOPLASMAL
     Route: 048
     Dates: start: 20120229, end: 20120303
  6. IPRATROPIUM BROMIDE [Suspect]
     Indication: BRONCHITIS
     Route: 065
     Dates: start: 20120227, end: 20120305

REACTIONS (1)
  - Neutropenia [Recovering/Resolving]
